FAERS Safety Report 8076784-0 (Version None)
Quarter: 2012Q1

REPORT INFORMATION
  Report Type: 
  Country: None (occurrence: None)
  Receive Date: 20120127
  Receipt Date: 20120119
  Transmission Date: 20120608
  Serious: Yes (Other)
  Sender: FDA-Public Use
  Company Number: FR-JNJFOC-20120111006

PATIENT
  Age: 21 Year
  Sex: Male

DRUGS (5)
  1. LEXOMIL [Concomitant]
     Route: 065
  2. RISPERDAL CONSTA [Suspect]
     Indication: SCHIZOPHRENIA
     Route: 030
     Dates: start: 20070101
  3. VALIUM [Concomitant]
     Route: 065
  4. LOXAPINE HCL [Concomitant]
     Route: 065
  5. IMOVANE [Concomitant]
     Route: 065

REACTIONS (3)
  - DELUSION [None]
  - DRUG INEFFECTIVE [None]
  - SUICIDAL IDEATION [None]
